FAERS Safety Report 13087913 (Version 1)
Quarter: 2017Q1

REPORT INFORMATION
  Report Type: Spontaneous
  Country: CA (occurrence: CA)
  Receive Date: 20170105
  Receipt Date: 20170105
  Transmission Date: 20170428
  Serious: Yes (Death)
  Sender: FDA-Public Use
  Company Number: CA-JNJFOC-20170101968

PATIENT
  Age: 33 Year
  Sex: Female
  Weight: 128 kg

DRUGS (5)
  1. INVOKANA [Suspect]
     Active Substance: CANAGLIFLOZIN
     Indication: TYPE 2 DIABETES MELLITUS
     Route: 048
  2. NOVOLIN-TORONTO [Concomitant]
     Active Substance: INSULIN HUMAN
     Route: 065
  3. ESCITALOPRAM [Concomitant]
     Active Substance: ESCITALOPRAM OXALATE
     Route: 065
  4. TRANDOLAPRIL. [Concomitant]
     Active Substance: TRANDOLAPRIL
     Route: 065
  5. JANUMET [Concomitant]
     Active Substance: METFORMIN HYDROCHLORIDE\SITAGLIPTIN PHOSPHATE
     Route: 065

REACTIONS (8)
  - Diabetic complication [Unknown]
  - Weight decreased [Unknown]
  - Treatment noncompliance [Unknown]
  - Decreased appetite [Unknown]
  - Nausea [Unknown]
  - Diabetic ketoacidosis [Fatal]
  - Vomiting [Unknown]
  - Gastrointestinal disorder [Unknown]
